FAERS Safety Report 14969768 (Version 1)
Quarter: 2018Q2

REPORT INFORMATION
  Report Type: Spontaneous
  Country: US (occurrence: US)
  Receive Date: 20180604
  Receipt Date: 20180604
  Transmission Date: 20180711
  Serious: Yes (Hospitalization)
  Sender: FDA-Public Use
  Company Number: US-ANIPHARMA-2018-US-009074

PATIENT
  Age: 57 Year
  Sex: Female

DRUGS (1)
  1. ARIMIDEX [Suspect]
     Active Substance: ANASTROZOLE
     Dosage: ONCE DAILY
     Route: 048

REACTIONS (5)
  - Weight increased [Not Recovered/Not Resolved]
  - Myalgia [Recovering/Resolving]
  - Loss of consciousness [Recovered/Resolved]
  - Arthralgia [Recovering/Resolving]
  - Road traffic accident [Unknown]

NARRATIVE: CASE EVENT DATE: 201606
